FAERS Safety Report 9413258 (Version 1)
Quarter: 2013Q3

REPORT INFORMATION
  Report Type: Spontaneous
  Country: US (occurrence: US)
  Receive Date: 20130722
  Receipt Date: 20130722
  Transmission Date: 20140515
  Serious: Yes (Other)
  Sender: FDA-Public Use
  Company Number: US-TEVA-420273USA

PATIENT
  Sex: Female

DRUGS (2)
  1. PROAIR HFA [Suspect]
     Indication: ASTHMA
  2. PULMICORT [Concomitant]
     Indication: ASTHMA

REACTIONS (1)
  - Emphysema [Not Recovered/Not Resolved]
